FAERS Safety Report 18761964 (Version 1)
Quarter: 2021Q1

REPORT INFORMATION
  Report Type: Spontaneous
  Country: US (occurrence: US)
  Receive Date: 20210118
  Receipt Date: 20210118
  Transmission Date: 20210419
  Serious: Yes (Hospitalization)
  Sender: FDA-Public Use
  Company Number: None

PATIENT
  Sex: Male

DRUGS (1)
  1. IMATINIB 100MG [Suspect]
     Active Substance: IMATINIB
     Indication: GASTROINTESTINAL NEOPLASM
     Route: 048
     Dates: start: 20180323

REACTIONS (2)
  - Haematemesis [None]
  - Intestinal haemorrhage [None]
